FAERS Safety Report 23974334 (Version 1)
Quarter: 2024Q2

REPORT INFORMATION
  Report Type: Spontaneous
  Country: US (occurrence: US)
  Receive Date: 20240614
  Receipt Date: 20240614
  Transmission Date: 20240716
  Serious: No
  Sender: FDA-Public Use
  Company Number: US-BRISTOL-MYERS SQUIBB COMPANY-2024-085732

PATIENT

DRUGS (1)
  1. ORENCIA [Suspect]
     Active Substance: ABATACEPT
     Indication: Anti-cyclic citrullinated peptide antibody
     Route: 042

REACTIONS (4)
  - Psoriasis [Recovered/Resolved]
  - Enthesopathy [Recovering/Resolving]
  - Contusion [Unknown]
  - Balance disorder [Unknown]
